FAERS Safety Report 16113220 (Version 1)
Quarter: 2019Q1

REPORT INFORMATION
  Report Type: Spontaneous
  Country: TT (occurrence: TT)
  Receive Date: 20190325
  Receipt Date: 20190325
  Transmission Date: 20190418
  Serious: Yes (Death, Other)
  Sender: FDA-Public Use
  Company Number: TT-PFIZER INC-2019128386

PATIENT
  Age: 64 Year
  Sex: Female

DRUGS (1)
  1. AROMASIN [Suspect]
     Active Substance: EXEMESTANE
     Indication: ENDOMETRIAL CANCER
     Dosage: 25 MG, 1X/DAY
     Dates: start: 2018

REACTIONS (1)
  - Death [Fatal]
